FAERS Safety Report 17531593 (Version 2)
Quarter: 2020Q1

REPORT INFORMATION
  Report Type: Report from Study
  Country: CN (occurrence: CN)
  Receive Date: 20200312
  Receipt Date: 20200319
  Transmission Date: 20200409
  Serious: Yes (Hospitalization)
  Sender: FDA-Public Use
  Company Number: CN-ROCHE-2221162

PATIENT
  Age: 35 Year
  Sex: Male
  Weight: 67 kg

DRUGS (25)
  1. PREDNISONE. [Suspect]
     Active Substance: PREDNISONE
     Indication: B-CELL LYMPHOMA
     Route: 048
     Dates: start: 20130518
  2. PALONOSETRON HYDROCHLORIDE. [Concomitant]
     Active Substance: PALONOSETRON HYDROCHLORIDE
     Route: 065
     Dates: start: 20130611, end: 20130611
  3. LANSOPRAZOLE. [Concomitant]
     Active Substance: LANSOPRAZOLE
     Route: 065
     Dates: start: 20130611, end: 20130611
  4. GLUTATHIONE REDUCED [Concomitant]
     Indication: ASPARTATE AMINOTRANSFERASE DECREASED
     Route: 065
     Dates: start: 20130607, end: 20130612
  5. CYCLOPHOSPHAMIDE. [Suspect]
     Active Substance: CYCLOPHOSPHAMIDE
     Indication: B-CELL LYMPHOMA
     Dosage: DOSE OF LAST CYCLOPHOSPHAMIDE TAKEN: 1357.5 MG
     Route: 042
     Dates: start: 20130518
  6. VINCRISTINE [Suspect]
     Active Substance: VINCRISTINE
     Indication: B-CELL LYMPHOMA
     Dosage: DOSE OF LAST VINCRISTINE TAKEN: 2 MG
     Route: 042
     Dates: start: 20130518
  7. OMEPRAZOLE. [Concomitant]
     Active Substance: OMEPRAZOLE
     Route: 065
     Dates: start: 20130518, end: 20130522
  8. PROMETHAZINE HYDROCHLORIDE. [Concomitant]
     Active Substance: PROMETHAZINE HYDROCHLORIDE
     Indication: SEDATION
     Route: 065
     Dates: start: 20130610, end: 20130610
  9. PALONOSETRON HYDROCHLORIDE. [Concomitant]
     Active Substance: PALONOSETRON HYDROCHLORIDE
     Route: 065
     Dates: start: 20130518, end: 20130518
  10. LANSOPRAZOLE. [Concomitant]
     Active Substance: LANSOPRAZOLE
     Route: 065
     Dates: start: 20130518, end: 20130518
  11. FILGRASTIM [Concomitant]
     Active Substance: FILGRASTIM
     Indication: NEUTROPENIA
     Route: 065
     Dates: start: 20130624, end: 20130624
  12. GLUTATHIONE REDUCED [Concomitant]
     Indication: ALANINE AMINOTRANSFERASE DECREASED
  13. CEFUROXIME SODIUM. [Concomitant]
     Active Substance: CEFUROXIME SODIUM
     Route: 065
     Dates: start: 20010821, end: 20130903
  14. DOXORUBICIN [Suspect]
     Active Substance: DOXORUBICIN
     Indication: B-CELL LYMPHOMA
     Dosage: DOSE OF LAST DOXORUBICIN TAKEN: 90.5 MG
     Route: 042
     Dates: start: 20130518
  15. PROMETHAZINE HYDROCHLORIDE. [Concomitant]
     Active Substance: PROMETHAZINE HYDROCHLORIDE
     Indication: PAIN
     Route: 065
     Dates: start: 20130517, end: 20130517
  16. DEXAMETHASONE SODIUM PHOSPHATE. [Concomitant]
     Active Substance: DEXAMETHASONE SODIUM PHOSPHATE
     Indication: TREMOR
     Route: 065
     Dates: start: 20130517, end: 20130517
  17. INDOMETACIN [Concomitant]
     Active Substance: INDOMETHACIN
     Indication: PAIN
     Route: 065
     Dates: start: 20130610, end: 20130610
  18. FILGRASTIM [Concomitant]
     Active Substance: FILGRASTIM
     Indication: WHITE BLOOD CELL COUNT INCREASED
     Route: 065
     Dates: start: 20130530, end: 20130531
  19. COMPOUND PARACETAMOL [Concomitant]
     Indication: PAIN
     Route: 065
     Dates: start: 20130517, end: 20130517
  20. COMPOUND PARACETAMOL [Concomitant]
     Route: 065
     Dates: start: 20130701, end: 20130701
  21. INDOMETACIN [Concomitant]
     Active Substance: INDOMETHACIN
     Route: 065
     Dates: start: 20130611, end: 20130611
  22. RITUXIMAB. [Suspect]
     Active Substance: RITUXIMAB
     Indication: B-CELL LYMPHOMA
     Dosage: VOLUME OF LAST RITUXIMAB TAKEN 678 ML ON 18/MAY/2013?UNKNOWN ML OF 1 MG/ML CONCENTRATION
     Route: 042
     Dates: start: 20130517
  23. LIDOCAINE. [Concomitant]
     Active Substance: LIDOCAINE
     Route: 065
     Dates: start: 20130515, end: 20130515
  24. OMEPRAZOLE. [Concomitant]
     Active Substance: OMEPRAZOLE
     Route: 065
     Dates: start: 20130611, end: 20130615
  25. PROMETHAZINE HYDROCHLORIDE. [Concomitant]
     Active Substance: PROMETHAZINE HYDROCHLORIDE
     Route: 065
     Dates: start: 20130701, end: 20130701

REACTIONS (2)
  - Alanine aminotransferase increased [Recovered/Resolved]
  - Aspartate aminotransferase increased [Recovered/Resolved]

NARRATIVE: CASE EVENT DATE: 20130607
